FAERS Safety Report 7939075-1 (Version None)
Quarter: 2011Q4

REPORT INFORMATION
  Report Type: 
  Country: None (occurrence: None)
  Receive Date: 20111124
  Receipt Date: 20111123
  Transmission Date: 20120403
  Serious: Yes (Other)
  Sender: FDA-Public Use
  Company Number: US-PFIZER INC-2010175754

PATIENT
  Sex: Male

DRUGS (36)
  1. CHANTIX [Suspect]
     Dosage: UNK
     Dates: start: 20090401, end: 20090701
  2. PROMETHAZINE [Concomitant]
     Indication: NAUSEA
     Dosage: UNK
     Dates: start: 20030101, end: 20110101
  3. MOTRIN [Concomitant]
     Indication: PAIN
     Dosage: UNK
     Dates: start: 20030101, end: 20100101
  4. KLONOPIN [Concomitant]
     Indication: DEPRESSION
  5. KLONOPIN [Concomitant]
     Indication: HEADACHE
  6. CLONIDINE [Concomitant]
     Indication: HEADACHE
  7. CELEXA [Concomitant]
     Indication: ANXIETY
     Dosage: UNK
     Dates: start: 20020101
  8. CELEXA [Concomitant]
     Indication: DEPRESSION
  9. CELEXA [Concomitant]
     Indication: INSOMNIA
  10. KLONOPIN [Concomitant]
     Indication: SUICIDAL IDEATION
  11. CLONIDINE [Concomitant]
     Indication: NIGHTMARE
  12. CELEXA [Concomitant]
     Indication: AGGRESSION
  13. CELEXA [Concomitant]
     Indication: IRRITABILITY
  14. KLONOPIN [Concomitant]
     Indication: AGGRESSION
  15. CLONIDINE [Concomitant]
     Indication: ANXIETY
     Dosage: UNK
     Dates: start: 20060101
  16. CLONIDINE [Concomitant]
     Indication: ANGER
  17. CLONIDINE [Concomitant]
     Indication: IRRITABILITY
  18. ZONEGRAN [Concomitant]
     Indication: WITHDRAWAL SYNDROME
     Dosage: UNK
     Dates: start: 20060101
  19. WELLBUTRIN [Concomitant]
     Indication: SMOKING CESSATION THERAPY
     Dosage: UNK
     Dates: start: 20040101
  20. CLONIDINE [Concomitant]
     Indication: AGGRESSION
  21. CELEXA [Concomitant]
     Indication: NIGHTMARE
  22. KLONOPIN [Concomitant]
     Indication: IRRITABILITY
  23. ZANTAC [Concomitant]
     Indication: GASTROOESOPHAGEAL REFLUX DISEASE
     Dosage: UNK
     Dates: start: 20040101
  24. CLONIDINE [Concomitant]
     Indication: DEPRESSION
  25. CLONIDINE [Concomitant]
     Indication: INSOMNIA
  26. REQUIP [Concomitant]
     Indication: RESTLESS LEGS SYNDROME
     Dosage: UNK
     Dates: start: 20060101
  27. CHANTIX [Suspect]
     Indication: SMOKING CESSATION THERAPY
     Dosage: STARTER PACK AND 2 CONTINUING MONTH PACKS
     Dates: start: 20071218, end: 20080301
  28. CELEXA [Concomitant]
     Indication: ANGER
  29. CELEXA [Concomitant]
     Indication: HEADACHE
  30. KLONOPIN [Concomitant]
     Indication: NIGHTMARE
  31. SEROQUEL [Concomitant]
     Dosage: UNK
     Dates: start: 20070101, end: 20100101
  32. CELEXA [Concomitant]
     Indication: SUICIDAL IDEATION
  33. KLONOPIN [Concomitant]
     Indication: ANXIETY
     Dosage: UNK
     Dates: start: 20030101
  34. KLONOPIN [Concomitant]
     Indication: ANGER
  35. KLONOPIN [Concomitant]
     Indication: INSOMNIA
  36. CLONIDINE [Concomitant]
     Indication: SUICIDAL IDEATION

REACTIONS (8)
  - AGGRESSION [None]
  - DEPRESSION [None]
  - INTENTIONAL OVERDOSE [None]
  - NIGHTMARE [None]
  - INSOMNIA [None]
  - SUICIDE ATTEMPT [None]
  - HEADACHE [None]
  - ANGER [None]
